FAERS Safety Report 8424502-6 (Version None)
Quarter: 2012Q2

REPORT INFORMATION
  Report Type: 
  Country: None (occurrence: None)
  Receive Date: 20120605
  Receipt Date: 20120605
  Transmission Date: 20120825
  Serious: No
  Sender: FDA-Public Use
  Company Number: None

PATIENT
  Sex: Female

DRUGS (1)
  1. CIPROFLOXACIN HCL [Suspect]
     Indication: EAR INFECTION
     Dosage: 500MG TWICE A DAY PO
     Route: 048
     Dates: start: 20120521, end: 20120528

REACTIONS (3)
  - PAIN IN EXTREMITY [None]
  - ARTHRALGIA [None]
  - FATIGUE [None]
